FAERS Safety Report 14402347 (Version 1)
Quarter: 2018Q1

REPORT INFORMATION
  Report Type: Spontaneous
  Country: US (occurrence: US)
  Receive Date: 20180117
  Receipt Date: 20180117
  Transmission Date: 20180509
  Serious: Yes (Hospitalization)
  Sender: FDA-Public Use
  Company Number: US-IPSEN BIOPHARMACEUTICALS, INC.-2018-00921

PATIENT
  Age: 1 Year
  Sex: Female
  Weight: 9 kg

DRUGS (2)
  1. BOTULINUM TOXIN [Suspect]
     Active Substance: BOTULINUM TOXIN NOS
     Indication: OFF LABEL USE
  2. BOTULINUM TOXIN [Suspect]
     Active Substance: BOTULINUM TOXIN NOS
     Indication: DYSPHAGIA
     Dosage: 30 UNITS
     Route: 030

REACTIONS (6)
  - Choking [Recovered/Resolved]
  - Dyspnoea [Recovered/Resolved]
  - Vomiting [Recovered/Resolved]
  - Pneumonia aspiration [Recovered/Resolved]
  - Neuromuscular toxicity [Recovering/Resolving]
  - Off label use [Unknown]
